FAERS Safety Report 5423692-7 (Version None)
Quarter: 2007Q3

REPORT INFORMATION
  Report Type: 
  Country: None (occurrence: None)
  Receive Date: 20070823
  Receipt Date: 20070813
  Transmission Date: 20080115
  Serious: Yes (Other)
  Sender: FDA-Public Use
  Company Number: B0484171A

PATIENT
  Sex: Female

DRUGS (3)
  1. ZIDOVUDINE [Suspect]
     Indication: ANTIVIRAL PROPHYLAXIS
     Route: 048
  2. LAMIVUDINE [Suspect]
     Indication: ANTIVIRAL PROPHYLAXIS
     Route: 048
  3. NEVIRAPINE [Suspect]
     Indication: ANTIVIRAL PROPHYLAXIS
     Route: 048

REACTIONS (4)
  - ABDOMINAL PAIN [None]
  - DIARRHOEA [None]
  - NAUSEA [None]
  - VOMITING [None]
